FAERS Safety Report 12614023 (Version 3)
Quarter: 2016Q4

REPORT INFORMATION
  Report Type: Spontaneous
  Country: US (occurrence: US)
  Receive Date: 20160802
  Receipt Date: 20161230
  Transmission Date: 20170207
  Serious: No
  Sender: FDA-Public Use
  Company Number: US-PFIZER INC-2016369074

PATIENT
  Age: 55 Year
  Sex: Female

DRUGS (27)
  1. ERYTHROMYCIN. [Suspect]
     Active Substance: ERYTHROMYCIN
     Dosage: UNK
  2. CORTISONE [Suspect]
     Active Substance: CORTISONE\HYDROCORTISONE
     Dosage: UNK
  3. CARBONYL IRON [Suspect]
     Active Substance: IRON
     Dosage: UNK
  4. BYETTA [Suspect]
     Active Substance: EXENATIDE
  5. GAMMA GLOBULIN HUMAN [Suspect]
     Active Substance: HUMAN IMMUNOGLOBULIN G
  6. GAMMA GLOBULIN [Suspect]
     Active Substance: IMMUNE GLOBULIN NOS
     Dosage: UNK
  7. IODINE. [Suspect]
     Active Substance: IODINE
     Dosage: UNK
     Route: 061
  8. ENABLEX [Suspect]
     Active Substance: DARIFENACIN HYDROBROMIDE
  9. TRILIPIX [Suspect]
     Active Substance: FENOFIBRIC ACID
     Dosage: UNK
  10. NORTRIPTYLINE [Suspect]
     Active Substance: NORTRIPTYLINE
     Dosage: UNK
  11. DIOVAN [Suspect]
     Active Substance: VALSARTAN
     Dosage: UNK
  12. REGLAN [Suspect]
     Active Substance: METOCLOPRAMIDE HYDROCHLORIDE
     Dosage: UNK
  13. PROVERA [Suspect]
     Active Substance: MEDROXYPROGESTERONE ACETATE
     Dosage: UNK
  14. IMMUNE GLOBULIN [Suspect]
     Active Substance: HUMAN IMMUNOGLOBULIN G
     Dosage: UNK
     Route: 042
  15. THIMEROSAL [Suspect]
     Active Substance: THIMEROSAL
     Dosage: UNK
     Route: 061
  16. PROVIGIL [Suspect]
     Active Substance: MODAFINIL
  17. METROCREAM [Suspect]
     Active Substance: METRONIDAZOLE
  18. NEXIUM [Suspect]
     Active Substance: ESOMEPRAZOLE MAGNESIUM
  19. SULFADIAZINE. [Suspect]
     Active Substance: SULFADIAZINE
     Dosage: UNK
  20. ALOE VERA [Suspect]
     Active Substance: ALOE VERA LEAF
     Dosage: UNK
     Route: 061
  21. LIBRAX [Suspect]
     Active Substance: CHLORDIAZEPOXIDE HYDROCHLORIDE\CLIDINIUM BROMIDE
     Dosage: UNK
  22. SCLAVOTEST [Suspect]
     Active Substance: TUBERCULIN PURIFIED PROTEIN DERIVATIVE
     Dosage: UNK
  23. BETADINE [Suspect]
     Active Substance: POVIDONE-IODINE
     Dosage: UNK
  24. NICKEL [Suspect]
     Active Substance: NICKEL
     Dosage: UNK
  25. BENTYL [Suspect]
     Active Substance: DICYCLOMINE HYDROCHLORIDE
     Dosage: UNK
  26. PROCHLORPERAZINE. [Suspect]
     Active Substance: PROCHLORPERAZINE
  27. ZOCOR [Suspect]
     Active Substance: SIMVASTATIN
     Dosage: UNK

REACTIONS (1)
  - Drug hypersensitivity [Unknown]
